FAERS Safety Report 12681624 (Version 1)
Quarter: 2016Q3

REPORT INFORMATION
  Report Type: Spontaneous
  Country: SA (occurrence: SA)
  Receive Date: 20160824
  Receipt Date: 20160824
  Transmission Date: 20161109
  Serious: Yes (Life-Threatening, Other)
  Sender: FDA-Public Use
  Company Number: SA-DEPOMED, INC.-SA-2016DEP011812

PATIENT
  Age: 79 Year
  Sex: Male
  Weight: 82 kg

DRUGS (1)
  1. FENTANYL. [Suspect]
     Active Substance: FENTANYL
     Indication: INDUCTION OF ANAESTHESIA
     Dosage: 100 ?G, BOLUS, ONCE

REACTIONS (10)
  - Muscle rigidity [Recovered/Resolved]
  - Abdominal rigidity [Recovered/Resolved]
  - Dyskinesia [Recovered/Resolved]
  - Loss of consciousness [Recovered/Resolved]
  - Muscle spasms [Recovered/Resolved]
  - Hypertension [Recovered/Resolved]
  - Trismus [Recovered/Resolved]
  - Oxygen saturation decreased [Recovered/Resolved]
  - Muscle contractions involuntary [Recovered/Resolved]
  - Respiratory failure [Recovered/Resolved]
